FAERS Safety Report 11523307 (Version 1)
Quarter: 2015Q3

REPORT INFORMATION
  Report Type: Spontaneous
  Country: US (occurrence: US)
  Receive Date: 20150903
  Receipt Date: 20150903
  Transmission Date: 20151125
  Serious: No
  Sender: FDA-Public Use
  Company Number: US-ELI_LILLY_AND_COMPANY-US201302000284

PATIENT
  Sex: Male

DRUGS (1)
  1. CYMBALTA [Suspect]
     Active Substance: DULOXETINE HYDROCHLORIDE
     Indication: DIABETIC NEUROPATHY
     Dosage: 60 MG, QD
     Dates: start: 201301

REACTIONS (9)
  - Decreased appetite [Unknown]
  - Feeling hot [Unknown]
  - Amnesia [Unknown]
  - Hyperhidrosis [Unknown]
  - Dry mouth [Unknown]
  - Hot flush [Unknown]
  - Musculoskeletal stiffness [Unknown]
  - Irritability [Unknown]
  - Weight decreased [Unknown]
